FAERS Safety Report 15750748 (Version 6)
Quarter: 2019Q2

REPORT INFORMATION
  Report Type: Report from Study
  Country: KR (occurrence: KR)
  Receive Date: 20181221
  Receipt Date: 20190410
  Transmission Date: 20190711
  Serious: Yes (Life-Threatening, Hospitalization)
  Sender: FDA-Public Use
  Company Number: KR-REGENERON PHARMACEUTICALS, INC.-2018-48421

PATIENT

DRUGS (14)
  1. ERDOSTEINE [Concomitant]
     Active Substance: ERDOSTEINE
     Indication: COUGH
     Dosage: 600 MG, TID
     Route: 048
     Dates: start: 20181126, end: 20181128
  2. MELATONIN [Concomitant]
     Active Substance: MELATONIN
     Indication: DELIRIUM
     Dosage: 2 MG, QD
     Route: 048
     Dates: start: 20181212
  3. PREDNISOLONE. [Concomitant]
     Active Substance: PREDNISOLONE
     Indication: ASTHENIA
     Dosage: 10 MG, BID
     Route: 048
     Dates: start: 20181127, end: 20181213
  4. PANTOPRAZOLE SODIUM SESQUIHYDRATE [Concomitant]
     Active Substance: PANTOPRAZOLE SODIUM
     Indication: GASTRITIS
     Dosage: 20 MG, QD
     Route: 048
     Dates: start: 20180906
  5. THEOBROMINE [Concomitant]
     Active Substance: THEOBROMINE
     Indication: COUGH
     Dosage: 600 MG, BID
     Route: 048
     Dates: start: 20181127
  6. CEMIPLIMAB [Suspect]
     Active Substance: CEMIPLIMAB
     Indication: NON-SMALL CELL LUNG CANCER
     Dosage: 1050 MG, Q3W
     Route: 042
     Dates: start: 20181119, end: 20181119
  7. BENPROPERINE PHOSPHATE [Concomitant]
     Active Substance: BENPROPERINE PHOSPHATE
     Indication: COUGH
     Dosage: 40 MG, TID
     Route: 048
     Dates: start: 20181021
  8. CODEINE PHOSPHATE [Concomitant]
     Active Substance: CODEINE PHOSPHATE
     Indication: ASTHENIA
     Dosage: 80 MG, QID
     Route: 048
     Dates: start: 20181023
  9. TRAZODONE HYDROCHLORIDE. [Concomitant]
     Active Substance: TRAZODONE HYDROCHLORIDE
     Indication: ASTHENIA
     Dosage: 25 MG, TID
     Route: 048
     Dates: start: 20181126, end: 20181129
  10. QUETIAPINE FUMARATE. [Concomitant]
     Active Substance: QUETIAPINE FUMARATE
     Indication: DELIRIUM
     Dosage: 25 MG, QD
     Route: 048
     Dates: start: 20181022
  11. PREDNISOLONE. [Concomitant]
     Active Substance: PREDNISOLONE
     Dosage: 5 MG, QD
     Route: 048
     Dates: start: 20181212
  12. ERDOSTEINE [Concomitant]
     Active Substance: ERDOSTEINE
     Dosage: 900 MG, TID
     Route: 048
     Dates: start: 20181101
  13. MIDAZOLAM [Concomitant]
     Active Substance: MIDAZOLAM HYDROCHLORIDE
     Indication: PROPHYLAXIS
     Dosage: 2.5 MG, QD
     Route: 042
     Dates: start: 20181125, end: 20181125
  14. AMINOACETIC ACID [Concomitant]
     Active Substance: GLYCINE
     Indication: ASTHENIA
     Dosage: 1000 ML, CONTINUOUS
     Route: 042
     Dates: start: 20181126, end: 20181128

REACTIONS (2)
  - Hypercalcaemia [Recovered/Resolved]
  - Febrile neutropenia [Recovered/Resolved]

NARRATIVE: CASE EVENT DATE: 20181212
